FAERS Safety Report 11113745 (Version 1)
Quarter: 2015Q2

REPORT INFORMATION
  Report Type: Spontaneous
  Country: US (occurrence: US)
  Receive Date: 20150514
  Receipt Date: 20150514
  Transmission Date: 20150821
  Serious: Yes (Hospitalization)
  Sender: FDA-Public Use
  Company Number: US-INTERMUNE, INC.-201505IM015583

PATIENT
  Age: 71 Year
  Sex: Female

DRUGS (6)
  1. ESBRIET [Suspect]
     Active Substance: PIRFENIDONE
     Indication: PULMONARY FIBROSIS
     Dosage: 801 MG
     Route: 048
     Dates: start: 20150407, end: 20150414
  2. ESBRIET [Suspect]
     Active Substance: PIRFENIDONE
     Dosage: 1602  MG
     Route: 048
     Dates: start: 20150415, end: 20150420
  3. ESBRIET [Suspect]
     Active Substance: PIRFENIDONE
     Dosage: 1602 MG
     Route: 048
     Dates: start: 20150422
  4. ESBRIET [Suspect]
     Active Substance: PIRFENIDONE
     Dosage: 2403 MG
     Route: 048
  5. OTHER ALIMENTARY TRACT AND METABOLISM PRODUCT [Concomitant]
     Indication: DYSPEPSIA
  6. ESBRIET [Suspect]
     Active Substance: PIRFENIDONE
     Dosage: 2403  MG
     Route: 048
     Dates: start: 20150421, end: 20150421

REACTIONS (5)
  - Faeces discoloured [Unknown]
  - Abdominal pain [Not Recovered/Not Resolved]
  - Dyspepsia [Unknown]
  - Diarrhoea [Not Recovered/Not Resolved]
  - Hypertension [Not Recovered/Not Resolved]

NARRATIVE: CASE EVENT DATE: 20150421
